FAERS Safety Report 7538112-6 (Version None)
Quarter: 2011Q2

REPORT INFORMATION
  Report Type: 
  Country: None (occurrence: None)
  Receive Date: 20110609
  Receipt Date: 19970720
  Transmission Date: 20111010
  Serious: Yes (Other)
  Sender: FDA-Public Use
  Company Number: PHHO1997BR04088

PATIENT
  Age: 60 Year
  Sex: Female
  Weight: 75 kg

DRUGS (2)
  1. DIOVAN [Suspect]
     Dosage: 80 MG, QD
     Route: 048
  2. HYGROTON [Concomitant]
     Dosage: 12.5 MG, UNK

REACTIONS (3)
  - LUNG DISORDER [None]
  - HYPERTENSION [None]
  - COUGH [None]
